FAERS Safety Report 7534441-0 (Version None)
Quarter: 2011Q2

REPORT INFORMATION
  Report Type: 
  Country: None (occurrence: None)
  Receive Date: 20110608
  Receipt Date: 20110524
  Transmission Date: 20111010
  Serious: Yes (Life-Threatening)
  Sender: FDA-Public Use
  Company Number: DE-WATSON-2011-07274

PATIENT
  Age: 80 Year
  Sex: Female
  Weight: 65 kg

DRUGS (15)
  1. DEKRISTOL [Concomitant]
     Indication: PRODUCT USED FOR UNKNOWN INDICATION
     Dosage: 3 DF DOSAGE FORM; 1 MONTH
  2. RAMIPRIL [Concomitant]
     Indication: HYPERTENSION
     Dosage: UNK
     Dates: start: 20061201
  3. L-THYROX [Concomitant]
     Indication: GOITRE
     Dosage: UNK
     Dates: start: 20080201
  4. BROMAZEPAM AL [Concomitant]
     Indication: INSOMNIA
     Dosage: UNK
     Dates: start: 20090601
  5. OLMESARTAN MEDOXOMIL AND HYDROCHLOROTHIZIDE [Concomitant]
     Indication: HYPERTENSION
     Dosage: UNK
     Dates: start: 20070101
  6. AMLODIPINE [Concomitant]
     Indication: HYPERTENSION
     Dosage: UNK
     Dates: start: 20070601
  7. ALENDRONATE SODIUM [Suspect]
     Indication: PRODUCT USED FOR UNKNOWN INDICATION
     Dosage: 70 MG, 1/WEEK
     Dates: start: 20101001
  8. DOXEPIN [Concomitant]
     Indication: INSOMNIA
     Dosage: UNK
     Dates: start: 20100801
  9. FUROSEMID AL [Concomitant]
     Indication: OEDEMA PERIPHERAL
     Dosage: 1/4-1/4-0
     Dates: start: 20100301
  10. FUROSEMID AL [Concomitant]
     Dosage: 1/4-0-0
     Dates: start: 20100501
  11. BISOPROLOL HEMIFUMARATE (UNKNOWN) [Concomitant]
     Dosage: UNK
     Dates: start: 20070901
  12. OPIPRAMOL [Concomitant]
     Indication: PRODUCT USED FOR UNKNOWN INDICATION
     Dosage: UNK
     Dates: start: 20100801, end: 20100901
  13. ISOSORBIDE DINITRATE [Concomitant]
     Indication: HYPERTENSION
     Dosage: UNK
     Dates: start: 20050401
  14. MARCUMAR [Interacting]
     Indication: ATRIAL FIBRILLATION
     Dosage: UNK
     Dates: start: 20080401
  15. VALPROAT CHRONO [Concomitant]
     Indication: SYNCOPE

REACTIONS (2)
  - DRUG EFFECT INCREASED [None]
  - DRUG INTERACTION [None]
